FAERS Safety Report 5638599-X (Version None)
Quarter: 2008Q1

REPORT INFORMATION
  Report Type: 
  Country: None (occurrence: None)
  Receive Date: 20080226
  Receipt Date: 20070831
  Transmission Date: 20080703
  Serious: No
  Sender: FDA-Public Use
  Company Number: A0659984A

PATIENT
  Age: 56 Year
  Sex: Female

DRUGS (5)
  1. IMITREX [Suspect]
     Indication: MIGRAINE
     Dosage: 6MG AS REQUIRED
     Route: 058
  2. OXYCODONE HCL [Concomitant]
  3. PRAVASTATIN [Concomitant]
  4. EFFEXOR XR [Concomitant]
  5. SYNTHROID [Concomitant]

REACTIONS (4)
  - DRUG ADMINISTRATION ERROR [None]
  - INJECTION SITE BRUISING [None]
  - INJECTION SITE PAIN [None]
  - PHARMACEUTICAL PRODUCT COMPLAINT [None]
